FAERS Safety Report 7283914-7 (Version None)
Quarter: 2011Q1

REPORT INFORMATION
  Report Type: 
  Country: None (occurrence: None)
  Receive Date: 20110209
  Receipt Date: 20110128
  Transmission Date: 20110831
  Serious: Yes (Other)
  Sender: FDA-Public Use
  Company Number: PHHY2011AR07079

PATIENT
  Age: 27 Year
  Sex: Male

DRUGS (5)
  1. THIORIDAZINE HCL [Suspect]
     Indication: TUBERCULOSIS
  2. LINEZOLID [Suspect]
     Indication: TUBERCULOSIS
  3. CYCLOSERINE [Suspect]
     Indication: TUBERCULOSIS
  4. ETHIONAMIDE [Suspect]
     Indication: TUBERCULOSIS
  5. MOXIFLOXACIN [Suspect]
     Indication: TUBERCULOSIS

REACTIONS (1)
  - TRANSAMINASES INCREASED [None]
